FAERS Safety Report 16897308 (Version 2)
Quarter: 2022Q1

REPORT INFORMATION
  Report Type: Report from Study
  Country: US (occurrence: None)
  Receive Date: 20191009
  Receipt Date: 20220208
  Transmission Date: 20220423
  Serious: Yes (Other)
  Sender: FDA-Public Use
  Company Number: US-ROCHE-2426954

PATIENT
  Age: 86 Year
  Sex: Female

DRUGS (2)
  1. ATEZOLIZUMAB [Suspect]
     Active Substance: ATEZOLIZUMAB
     Indication: Bladder cancer
     Route: 041
  2. ERIBULIN MESYLATE [Suspect]
     Active Substance: ERIBULIN MESYLATE
     Indication: Bladder cancer
     Route: 042

REACTIONS (6)
  - Neutrophil count decreased [Unknown]
  - Lipase increased [Unknown]
  - Hypertension [Unknown]
  - Influenza like illness [Unknown]
  - Infusion related reaction [Unknown]
  - Pancreatitis [Unknown]

NARRATIVE: CASE EVENT DATE: 20181114
